FAERS Safety Report 7070690-6 (Version None)
Quarter: 2010Q4

REPORT INFORMATION
  Report Type: 
  Country: None (occurrence: None)
  Receive Date: 20101029
  Receipt Date: 20101015
  Transmission Date: 20110411
  Serious: Yes (Other)
  Sender: FDA-Public Use
  Company Number: US-RANBAXY-2010RR-39056

PATIENT
  Sex: Female

DRUGS (7)
  1. WESTCORT TOPICAL CREAM [Suspect]
     Indication: PRODUCT USED FOR UNKNOWN INDICATION
     Route: 061
  2. LEVAQUIN [Suspect]
     Indication: INFECTION PROPHYLAXIS
     Dosage: UNK MG, UNK
     Route: 048
     Dates: start: 20050601, end: 20090101
  3. TRIAMCINOLONE [Suspect]
     Indication: PRODUCT USED FOR UNKNOWN INDICATION
     Dosage: UNK
     Route: 065
     Dates: start: 20060915, end: 20071017
  4. NASONEX [Suspect]
     Indication: PRODUCT USED FOR UNKNOWN INDICATION
     Dosage: 50 UG, UNK
     Route: 045
  5. LEVOFLOXACIN [Suspect]
     Dosage: 750 MG, UNK
  6. LEVOFLOXACIN [Suspect]
     Dosage: 500 MG, UNK
     Dates: start: 20050204, end: 20080103
  7. LEVOFLOXACIN [Suspect]
     Dosage: 500 MG, UNK
     Dates: start: 20081028

REACTIONS (4)
  - EPICONDYLITIS [None]
  - NEUROPATHY PERIPHERAL [None]
  - TENDON DISORDER [None]
  - TENOSYNOVITIS STENOSANS [None]
